FAERS Safety Report 5067114-7 (Version None)
Quarter: 2006Q3

REPORT INFORMATION
  Report Type: 
  Country: None (occurrence: None)
  Receive Date: 20060726
  Receipt Date: 20060713
  Transmission Date: 20061208
  Serious: Yes (Death, Hospitalization)
  Sender: FDA-Public Use
  Company Number: RENA-11843

PATIENT
  Age: 80 Year
  Sex: Female

DRUGS (1)
  1. RENAGEL [Suspect]
     Indication: HYPERPHOSPHATAEMIA
     Dosage: 1.6 G TID PO
     Route: 048
     Dates: start: 20050701, end: 20050701

REACTIONS (3)
  - CARDIO-RESPIRATORY ARREST [None]
  - INTESTINAL PERFORATION [None]
  - REFUSAL OF TREATMENT BY RELATIVE [None]
